FAERS Safety Report 9015903 (Version 7)
Quarter: 2013Q3

REPORT INFORMATION
  Report Type: Spontaneous
  Country: US (occurrence: US)
  Receive Date: 20130116
  Receipt Date: 20130723
  Transmission Date: 20140515
  Serious: Yes (Hospitalization, Other)
  Sender: FDA-Public Use
  Company Number: US-009507513-1301USA005631

PATIENT
  Sex: Female
  Weight: 63.49 kg

DRUGS (7)
  1. FOSAMAX [Suspect]
     Indication: OSTEOPOROSIS
     Dosage: 70 MG, UNK
     Route: 048
     Dates: start: 20050521
  2. ALENDRONATE SODIUM [Suspect]
     Indication: OSTEOPOROSIS
     Dosage: 70 MG, UNK
     Route: 048
     Dates: start: 20080707, end: 20101004
  3. VITAMINS (UNSPECIFIED) [Concomitant]
     Dosage: 1 CAPSULE DAILY
     Dates: start: 1999
  4. CALCIUM (UNSPECIFIED) [Concomitant]
     Dosage: 500 MG, BID
     Route: 048
     Dates: start: 1999
  5. VITAMIN E [Concomitant]
     Dosage: 1 CAPSULE DAILY
     Dates: start: 1999
  6. ASCORBIC ACID [Concomitant]
     Dosage: 1CAPSULE DAILY
     Dates: start: 1999
  7. VITAMIN D (UNSPECIFIED) [Concomitant]
     Dosage: 400 MG, BID
     Route: 048
     Dates: start: 1999

REACTIONS (33)
  - Femur fracture [Recovering/Resolving]
  - Intramedullary rod insertion [Recovering/Resolving]
  - Intramedullary rod insertion [Unknown]
  - Fracture nonunion [Unknown]
  - Haemorrhagic anaemia [Recovering/Resolving]
  - Road traffic accident [Unknown]
  - Radius fracture [Recovered/Resolved]
  - Traumatic liver injury [Unknown]
  - Pancreatic injury [Unknown]
  - Femur fracture [Unknown]
  - Foot fracture [Unknown]
  - Adverse drug reaction [Unknown]
  - Thrombocytosis [Unknown]
  - Hyperlipidaemia [Unknown]
  - Osteoarthritis [Unknown]
  - Anxiety [Unknown]
  - Exostosis [Unknown]
  - Tonsillectomy [Unknown]
  - Temporomandibular joint syndrome [Unknown]
  - Emphysema [Unknown]
  - Insomnia [Unknown]
  - Cardiac murmur [Unknown]
  - Injury [Unknown]
  - Hypovitaminosis [Unknown]
  - Hypokalaemia [Unknown]
  - Rib fracture [Recovered/Resolved]
  - Nasal operation [Unknown]
  - Fatigue [Unknown]
  - Tearfulness [Unknown]
  - Anhedonia [Unknown]
  - Pain in extremity [Unknown]
  - Musculoskeletal pain [Unknown]
  - Constipation [Unknown]
